FAERS Safety Report 26167379 (Version 1)
Quarter: 2025Q4

REPORT INFORMATION
  Report Type: Report from Study
  Country: US (occurrence: US)
  Receive Date: 20251217
  Receipt Date: 20251217
  Transmission Date: 20260118
  Serious: Yes (Other)
  Sender: JOHNSON AND JOHNSON
  Company Number: US-JNJFOC-20251211783

PATIENT

DRUGS (1)
  1. ERDAFITINIB [Suspect]
     Active Substance: ERDAFITINIB
     Indication: Glioblastoma

REACTIONS (10)
  - Ocular toxicity [Unknown]
  - Gastrooesophageal reflux disease [Unknown]
  - Xerosis [Unknown]
  - Off label use [Unknown]
  - Hyperphosphataemia [Unknown]
  - Stomatitis [Unknown]
  - Diarrhoea [Unknown]
  - Fatigue [Unknown]
  - Skin toxicity [Unknown]
  - Nail disorder [Unknown]
